FAERS Safety Report 20042015 (Version 3)
Quarter: 2022Q1

REPORT INFORMATION
  Report Type: Spontaneous
  Country: US (occurrence: US)
  Receive Date: 20211108
  Receipt Date: 20220131
  Transmission Date: 20220423
  Serious: No
  Sender: FDA-Public Use
  Company Number: US-BAUSCH-BL-2021-035925

PATIENT
  Age: 70 Year
  Sex: Female

DRUGS (2)
  1. LACRISERT [Suspect]
     Active Substance: HYDROXYPROPYL CELLULOSE
     Indication: Sjogren^s syndrome
     Dosage: USING FOR ABOUT 35 YEARS 1 INSERT INTO EACH EYE
     Route: 065
  2. LACRISERT [Suspect]
     Active Substance: HYDROXYPROPYL CELLULOSE
     Dosage: USING FOR ABOUT 35 YEARS 1 INSERT INTO EACH EYE EVERY OTHER DAY
     Route: 065
     Dates: end: 202109

REACTIONS (7)
  - Eye pain [Unknown]
  - Photophobia [Unknown]
  - COVID-19 [Recovering/Resolving]
  - Visual impairment [Not Recovered/Not Resolved]
  - Intentional product use issue [Unknown]
  - Product supply issue [Unknown]
  - Therapy interrupted [Unknown]

NARRATIVE: CASE EVENT DATE: 20210101
